FAERS Safety Report 5621226-5 (Version None)
Quarter: 2008Q1

REPORT INFORMATION
  Report Type: 
  Country: None (occurrence: None)
  Receive Date: 20080114
  Receipt Date: 20070216
  Transmission Date: 20080703
  Serious: Yes (Other)
  Sender: FDA-Public Use
  Company Number: A03200701418

PATIENT
  Sex: Male

DRUGS (2)
  1. PLAVIX [Suspect]
     Indication: CORONARY ARTERY OCCLUSION
     Dosage: 75 MG QD-ORAL
     Route: 048
     Dates: start: 20020101
  2. ACETYLSALICYLIC ACID SRT [Concomitant]

REACTIONS (6)
  - ARTERIOSCLEROTIC RETINOPATHY [None]
  - BLINDNESS TRANSIENT [None]
  - CEREBROVASCULAR ACCIDENT [None]
  - EYE HAEMORRHAGE [None]
  - FAT EMBOLISM [None]
  - PARAESTHESIA [None]
